FAERS Safety Report 23229741 (Version 1)
Quarter: 2023Q4

REPORT INFORMATION
  Report Type: Spontaneous
  Country: US (occurrence: US)
  Receive Date: 20231127
  Receipt Date: 20231127
  Transmission Date: 20240110
  Serious: Yes (Other)
  Sender: FDA-Public Use
  Company Number: US-STRIDES ARCOLAB LIMITED-2023SP013077

PATIENT
  Age: 63 Year
  Sex: Male

DRUGS (14)
  1. DOXORUBICIN [Suspect]
     Active Substance: DOXORUBICIN
     Indication: Myeloproliferative neoplasm
     Dosage: UNK (FIRST-LINE THERAPY)
     Route: 065
  2. DOXORUBICIN [Suspect]
     Active Substance: DOXORUBICIN
     Indication: B-cell type acute leukaemia
  3. DEXAMETHASONE [Suspect]
     Active Substance: DEXAMETHASONE
     Indication: Myeloproliferative neoplasm
     Dosage: UNK (FIRST-LINE THERAPY)
     Route: 065
  4. DEXAMETHASONE [Suspect]
     Active Substance: DEXAMETHASONE
     Indication: B-cell type acute leukaemia
  5. CYCLOSPORINE [Suspect]
     Active Substance: CYCLOSPORINE
     Indication: Myeloproliferative neoplasm
     Dosage: UNK (SECOND-LINE THERAPY)
     Route: 065
  6. CYCLOSPORINE [Suspect]
     Active Substance: CYCLOSPORINE
     Indication: B-cell type acute leukaemia
  7. CYCLOPHOSPHAMIDE [Suspect]
     Active Substance: CYCLOPHOSPHAMIDE
     Indication: Myeloproliferative neoplasm
     Dosage: UNK (FIRST-LINE THERAPY)
     Route: 065
  8. CYCLOPHOSPHAMIDE [Suspect]
     Active Substance: CYCLOPHOSPHAMIDE
     Indication: B-cell type acute leukaemia
  9. VINCRISTINE [Suspect]
     Active Substance: VINCRISTINE
     Indication: Myeloproliferative neoplasm
     Dosage: UNK (FIRST-LINE THERAPY)
     Route: 065
  10. VINCRISTINE [Suspect]
     Active Substance: VINCRISTINE
     Indication: B-cell type acute leukaemia
  11. CYTARABINE [Suspect]
     Active Substance: CYTARABINE
     Indication: Myeloproliferative neoplasm
     Dosage: UNK (RECEIVED SECOND-LINE THERAPY WITH HIGH-DOSE)
     Route: 065
  12. CYTARABINE [Suspect]
     Active Substance: CYTARABINE
     Indication: B-cell type acute leukaemia
     Dosage: UNK (RECEIVED THIRD-LINE THERAPY WITH HIGH-DOSE)
     Route: 065
  13. CLADRIBINE [Suspect]
     Active Substance: CLADRIBINE
     Indication: Myeloproliferative neoplasm
     Dosage: UNK (THIRD-LINE THERAPY)
     Route: 065
  14. CLADRIBINE [Suspect]
     Active Substance: CLADRIBINE
     Indication: B-cell type acute leukaemia

REACTIONS (2)
  - Therapy non-responder [Unknown]
  - Off label use [Unknown]
